FAERS Safety Report 8793194 (Version 2)
Quarter: 2015Q2

REPORT INFORMATION
  Report Type: Report from Study
  Country: US (occurrence: US)
  Receive Date: 20120918
  Receipt Date: 20150618
  Transmission Date: 20150821
  Serious: Yes (Death)
  Sender: FDA-Public Use
  Company Number: US-ROCHE-1125051

PATIENT
  Sex: Male
  Weight: 94.43 kg

DRUGS (19)
  1. AVASTIN [Suspect]
     Active Substance: BEVACIZUMAB
     Indication: MALIGNANT RESPIRATORY TRACT NEOPLASM
     Dosage: 1323MG AT 15MG/KG OF 25MG/ML  SHORT OVER 90 MINS FOR 1 DAY IN NORMAL SALINE
     Route: 042
     Dates: start: 20060220
  2. DEXAMETHASONE SODIUM PHOSPHATE. [Concomitant]
     Active Substance: DEXAMETHASONE SODIUM PHOSPHATE
     Dosage: 10MG OF 10MG/ML MINUTES FOR 1 DAY IN 50ML NS
     Route: 042
     Dates: start: 20060220
  3. NEULASTA [Concomitant]
     Active Substance: PEGFILGRASTIM
     Route: 065
  4. COUMADIN [Concomitant]
     Active Substance: WARFARIN SODIUM
     Dosage: FOR 30 DAYS
     Route: 048
  5. ALOXI [Concomitant]
     Active Substance: PALONOSETRON HYDROCHLORIDE
     Route: 042
  6. ALIMTA [Concomitant]
     Active Substance: PEMETREXED DISODIUM
     Dosage: NORMAL SALINE 500ML (0.9%)
     Route: 042
  7. COUMADIN [Concomitant]
     Active Substance: WARFARIN SODIUM
     Route: 065
  8. LORTAB (UNITED STATES) [Concomitant]
     Dosage: 4 TO 6 HRS PRN?5-500MG
     Route: 048
  9. ZOFRAN [Concomitant]
     Active Substance: ONDANSETRON HYDROCHLORIDE
     Dosage: 30 MIN FOR 1 DAY
     Route: 042
  10. ALIMTA [Concomitant]
     Active Substance: PEMETREXED DISODIUM
     Dosage: 1085MG AT 500MG/M2 OF 25MG/ML, IV SHORT OVER 10 MINS FOR 1 DAZ IN NORMA SALINE 100ML
     Route: 042
     Dates: start: 20060220
  11. COMPAZINE [Concomitant]
     Active Substance: PROCHLORPERAZINE MALEATE
     Dosage: 4 HOURS PRN
     Route: 048
  12. AUGMENTIN [Concomitant]
     Active Substance: AMOXICILLIN\CLAVULANATE POTASSIUM
     Dosage: PRN
     Route: 048
  13. DECADRON [Concomitant]
     Active Substance: DEXAMETHASONE
     Route: 065
  14. VITAMIN B12 [Concomitant]
     Active Substance: CYANOCOBALAMIN
  15. COMPAZINE [Concomitant]
     Active Substance: PROCHLORPERAZINE MALEATE
     Dosage: 6 DAYS
     Route: 054
  16. CYANOCOBALAMIN. [Concomitant]
     Active Substance: CYANOCOBALAMIN
     Route: 030
  17. CIPRO [Concomitant]
     Active Substance: CIPROFLOXACIN HYDROCHLORIDE
     Route: 048
  18. ARANESP [Concomitant]
     Active Substance: DARBEPOETIN ALFA
  19. DECADRON [Concomitant]
     Active Substance: DEXAMETHASONE
     Route: 048

REACTIONS (5)
  - Neuropathy peripheral [Unknown]
  - Dyspnoea [Unknown]
  - Death [Fatal]
  - Fatigue [Unknown]
  - Pain [Unknown]
